FAERS Safety Report 6551508-4 (Version None)
Quarter: 2010Q1

REPORT INFORMATION
  Report Type: 
  Country: None (occurrence: None)
  Receive Date: 20100122
  Receipt Date: 20090825
  Transmission Date: 20100710
  Serious: Yes (Other)
  Sender: FDA-Public Use
  Company Number: WAES 0908USA04337

PATIENT

DRUGS (1)
  1. INVANZ [Suspect]
     Dosage: PO
     Route: 048

REACTIONS (2)
  - CONVULSION [None]
  - INCORRECT ROUTE OF DRUG ADMINISTRATION [None]
